FAERS Safety Report 15153411 (Version 1)
Quarter: 2018Q3

REPORT INFORMATION
  Report Type: Spontaneous
  Country: US (occurrence: US)
  Receive Date: 20180619
  Receipt Date: 20180619
  Transmission Date: 20181010
  Serious: No
  Sender: FDA-Public Use
  Company Number: None

PATIENT
  Age: 64 Year
  Sex: Female

DRUGS (1)
  1. LAMIVUDINE (HBV) TAB 100MG [Suspect]
     Active Substance: LAMIVUDINE
     Dates: start: 20161027, end: 20180619

REACTIONS (3)
  - Drug resistance [None]
  - Product substitution issue [None]
  - Drug ineffective [None]

NARRATIVE: CASE EVENT DATE: 20180619
